FAERS Safety Report 16921467 (Version 1)
Quarter: 2019Q4

REPORT INFORMATION
  Report Type: Spontaneous
  Country: JP (occurrence: JP)
  Receive Date: 20191015
  Receipt Date: 20191015
  Transmission Date: 20200122
  Serious: Yes (Hospitalization)
  Sender: FDA-Public Use
  Company Number: JP-ALLERGAN-1941634US

PATIENT
  Sex: Female

DRUGS (4)
  1. PREDNISOLONE. [Concomitant]
     Active Substance: PREDNISOLONE
     Indication: STILL^S DISEASE
     Dosage: 8 MG, UNK
     Route: 048
  2. RISEDRONATE SODIUM - BP [Suspect]
     Active Substance: RISEDRONATE SODIUM
     Indication: STILL^S DISEASE
     Dosage: 17.5 MG, Q WEEK
     Route: 048
  3. PREDNISOLONE. [Concomitant]
     Active Substance: PREDNISOLONE
     Indication: SJOGREN^S SYNDROME
  4. RISEDRONATE SODIUM - BP [Suspect]
     Active Substance: RISEDRONATE SODIUM
     Indication: SJOGREN^S SYNDROME

REACTIONS (8)
  - Osteomyelitis [Unknown]
  - Blood pressure decreased [Unknown]
  - Hypoxia [Unknown]
  - Swelling face [Unknown]
  - Abscess jaw [Unknown]
  - Septic shock [Unknown]
  - Depressed level of consciousness [Unknown]
  - Osteonecrosis of jaw [Unknown]
